FAERS Safety Report 24278413 (Version 2)
Quarter: 2025Q3

REPORT INFORMATION
  Report Type: Spontaneous
  Country: US (occurrence: US)
  Receive Date: 20240903
  Receipt Date: 20250820
  Transmission Date: 20251021
  Serious: Yes (Other)
  Sender: ASTELLAS
  Company Number: US-ASTELLAS-2024US005015

PATIENT
  Age: 80 Year
  Sex: Male

DRUGS (3)
  1. XTANDI [Interacting]
     Active Substance: ENZALUTAMIDE
     Indication: Prostate cancer
     Dosage: 160 MG, ONCE DAILY
     Route: 048
     Dates: start: 20210531
  2. XTANDI [Interacting]
     Active Substance: ENZALUTAMIDE
     Dosage: 160 MG, ONCE DAILY
     Route: 048
     Dates: start: 202106
  3. ELIQUIS [Interacting]
     Active Substance: APIXABAN
     Indication: Product used for unknown indication
     Route: 065

REACTIONS (2)
  - Myocardial infarction [Unknown]
  - Drug interaction [Unknown]

NARRATIVE: CASE EVENT DATE: 20210605
